APPROVED DRUG PRODUCT: PREDNISONE
Active Ingredient: PREDNISONE
Strength: 5MG
Dosage Form/Route: TABLET;ORAL
Application: A088865 | Product #001
Applicant: SUPERPHARM CORP
Approved: Oct 25, 1984 | RLD: No | RS: No | Type: DISCN